FAERS Safety Report 16274805 (Version 1)
Quarter: 2019Q2

REPORT INFORMATION
  Report Type: Spontaneous
  Country: US (occurrence: US)
  Receive Date: 20190503
  Receipt Date: 20190503
  Transmission Date: 20190711
  Serious: Yes (Other)
  Sender: FDA-Public Use
  Company Number: None

PATIENT
  Age: 28 Year
  Sex: Female
  Weight: 118.35 kg

DRUGS (1)
  1. OMEPRAZOLE DELAYED-RELEASE CAPSULES USP (40MG) - GENERIC FOR PRILOSEC [Suspect]
     Active Substance: OMEPRAZOLE
     Indication: DYSPEPSIA
     Dosage: ?          QUANTITY:1 CAPSULE(S);?
     Route: 048
     Dates: start: 20190429, end: 20190502

REACTIONS (10)
  - Dysphagia [None]
  - Eye irritation [None]
  - Chest pain [None]
  - Migraine [None]
  - Muscle twitching [None]
  - Drug hypersensitivity [None]
  - Abdominal pain [None]
  - Neck pain [None]
  - Oropharyngeal pain [None]
  - Pharyngeal swelling [None]

NARRATIVE: CASE EVENT DATE: 20190502
